FAERS Safety Report 17340028 (Version 1)
Quarter: 2020Q1

REPORT INFORMATION
  Report Type: Spontaneous
  Country: US (occurrence: US)
  Receive Date: 20200129
  Receipt Date: 20200129
  Transmission Date: 20200409
  Serious: No
  Sender: FDA-Public Use
  Company Number: US-LANNETT COMPANY, INC.-US-2019LAN001131

PATIENT
  Age: 7 Month
  Sex: Male

DRUGS (3)
  1. TYLENOL [Concomitant]
     Active Substance: ACETAMINOPHEN
     Indication: TEETHING
     Dosage: UNK
  2. RANITIDINE HYDROCHLORIDE. [Suspect]
     Active Substance: RANITIDINE HYDROCHLORIDE
     Indication: DYSPNOEA
     Dosage: 1.3 ML, UNK
     Route: 048
     Dates: start: 20190830, end: 20190903
  3. ALBUTEROL                          /00139501/ [Concomitant]
     Active Substance: ALBUTEROL
     Indication: CHILDHOOD ASTHMA
     Dosage: UNK

REACTIONS (2)
  - Rash [Recovered/Resolved]
  - Fontanelle bulging [Recovered/Resolved]

NARRATIVE: CASE EVENT DATE: 201909
